FAERS Safety Report 16848631 (Version 1)
Quarter: 2019Q3

REPORT INFORMATION
  Report Type: Spontaneous
  Country: US (occurrence: US)
  Receive Date: 20190802
  Receipt Date: 20190802
  Transmission Date: 20191005
  Serious: Yes (Hospitalization)
  Sender: FDA-Public Use
  Company Number: None

PATIENT
  Age: 64 Year
  Sex: Male

DRUGS (8)
  1. DIVALPROEX [Concomitant]
     Active Substance: DIVALPROEX SODIUM
  2. OLANZAPINE. [Concomitant]
     Active Substance: OLANZAPINE
  3. TAMSULOSIN [Concomitant]
     Active Substance: TAMSULOSIN
  4. CLONAZEPAM. [Concomitant]
     Active Substance: CLONAZEPAM
  5. LITHIUM. [Suspect]
     Active Substance: LITHIUM
     Indication: SCHIZOPHRENIA
     Route: 048
     Dates: start: 20190110, end: 20190123
  6. ASPIRIN. [Concomitant]
     Active Substance: ASPIRIN
  7. AMANTADINE. [Concomitant]
     Active Substance: AMANTADINE HYDROCHLORIDE
  8. TRAZODONE [Concomitant]
     Active Substance: TRAZODONE HYDROCHLORIDE

REACTIONS (3)
  - Abnormal behaviour [None]
  - Agitation [None]
  - Hypernatraemia [None]

NARRATIVE: CASE EVENT DATE: 20190123
